FAERS Safety Report 7750254-9 (Version None)
Quarter: 2011Q3

REPORT INFORMATION
  Report Type: 
  Country: None (occurrence: None)
  Receive Date: 20110912
  Receipt Date: 20110826
  Transmission Date: 20111222
  Serious: Yes (Hospitalization, Disabling)
  Sender: FDA-Public Use
  Company Number: GER/GER/11/0020851

PATIENT
  Age: 60 Year
  Sex: Female

DRUGS (4)
  1. PANTOPRAZOLE SODIUM [Suspect]
     Indication: PRODUCT USED FOR UNKNOWN INDICATION
     Dosage: ONCE DAILY, ORAL
     Route: 048
  2. AMLODIPINE [Suspect]
     Indication: PRODUCT USED FOR UNKNOWN INDICATION
     Dosage: 1-0-0, ORAL
     Route: 048
  3. ENALAPRIL MALEATE [Suspect]
     Indication: PRODUCT USED FOR UNKNOWN INDICATION
     Dosage: 10 MG, 1-0-0, ORAL; 25 MG, 1-0-0, ORAL
     Route: 048
  4. JULIETTE (DIANE) [Suspect]
     Dosage: 0-0-1, ORAL
     Route: 048

REACTIONS (1)
  - HEPATITIS TOXIC [None]
